FAERS Safety Report 5304971-0 (Version None)
Quarter: 2007Q2

REPORT INFORMATION
  Report Type: 
  Country: None (occurrence: None)
  Receive Date: 20070423
  Receipt Date: 20070411
  Transmission Date: 20071010
  Serious: Yes (Hospitalization, Other)
  Sender: FDA-Public Use
  Company Number: JP-PFIZER INC-2007027661

PATIENT
  Age: 40 Year
  Sex: Female

DRUGS (12)
  1. MEDROL [Suspect]
     Indication: ASTHMA
     Dosage: DAILY DOSE:20MG
     Route: 048
     Dates: start: 20070226, end: 20070306
  2. RINDERON [Suspect]
     Indication: ASTHMA
     Dosage: DAILY DOSE:2MG
     Route: 048
  3. MEIACT [Concomitant]
     Route: 048
  4. SUCRALFATE [Concomitant]
     Route: 048
  5. MUCODYNE [Concomitant]
     Route: 048
  6. QVAR 40 [Concomitant]
     Route: 055
  7. SPIRIVA [Concomitant]
     Route: 055
  8. MONTELUKAST SODIUM [Concomitant]
     Route: 048
  9. UNIPHYL [Concomitant]
     Route: 048
  10. ZADITEN [Concomitant]
  11. HERBAL PREPARATION [Concomitant]
     Route: 048
  12. ANTIDEPRESSANTS [Concomitant]
     Indication: DEPRESSION

REACTIONS (4)
  - ASTHMA [None]
  - CHORIORETINOPATHY [None]
  - MENTAL DISORDER [None]
  - NASOPHARYNGITIS [None]
